FAERS Safety Report 4294292-X (Version None)
Quarter: 2004Q1

REPORT INFORMATION
  Report Type: 
  Country: None (occurrence: None)
  Receive Date: 20040211
  Receipt Date: 20040209
  Transmission Date: 20041129
  Serious: Yes (Death, Other)
  Sender: FDA-Public Use
  Company Number: 2015344

PATIENT
  Age: 22 Year
  Sex: Male
  Weight: 103 kg

DRUGS (4)
  1. OXYCONTIN [Suspect]
     Indication: PAIN
     Dosage: 20 MG BID ORAL
     Route: 048
     Dates: start: 20000712
  2. CELEBREX [Concomitant]
  3. SERZONE [Concomitant]
  4. ZANAFLEX [Concomitant]

REACTIONS (9)
  - ANXIETY [None]
  - COMPLETED SUICIDE [None]
  - DEPRESSION [None]
  - DRUG DEPENDENCE [None]
  - DRUG TOLERANCE INCREASED [None]
  - EMOTIONAL DISORDER [None]
  - GUN SHOT WOUND [None]
  - HEAD INJURY [None]
  - MOUTH HAEMORRHAGE [None]
